FAERS Safety Report 8267793-7 (Version None)
Quarter: 2012Q2

REPORT INFORMATION
  Report Type: 
  Country: None (occurrence: None)
  Receive Date: 20120404
  Receipt Date: 20120330
  Transmission Date: 20120825
  Serious: Yes (Life-Threatening, Other)
  Sender: FDA-Public Use
  Company Number: 216730

PATIENT
  Age: 17 Year
  Weight: 53.8 kg

DRUGS (1)
  1. INNOHEP [Suspect]
     Indication: PULMONARY EMBOLISM
     Dosage: 0.5 ML (0.5 ML, 1 IN 1 D), SUBCUTANEOUS
     Route: 058
     Dates: start: 20110807

REACTIONS (4)
  - DRUG INEFFECTIVE [None]
  - PULMONARY EMBOLISM [None]
  - DISEASE RECURRENCE [None]
  - OFF LABEL USE [None]
